FAERS Safety Report 10620555 (Version 1)
Quarter: 2014Q4

REPORT INFORMATION
  Report Type: Spontaneous
  Country: DE (occurrence: DE)
  Receive Date: 20141202
  Receipt Date: 20141202
  Transmission Date: 20150529
  Serious: Yes (Congenital Anomaly, Other)
  Sender: FDA-Public Use
  Company Number: DE-GLAXOSMITHKLINE-DE2014029040

PATIENT

DRUGS (13)
  1. SEROQUEL [Suspect]
     Active Substance: QUETIAPINE FUMARATE
     Indication: BIPOLAR DISORDER
     Dosage: 600 [MG/D ]
     Route: 064
     Dates: start: 20120604, end: 20130309
  2. CYTOTEC [Concomitant]
     Active Substance: MISOPROSTOL
     Indication: LABOUR INDUCTION
     Route: 064
     Dates: start: 20130308, end: 20130308
  3. CEFUROXIM [Concomitant]
     Active Substance: CEFUROXIME
     Indication: INFECTION PROPHYLAXIS
     Dosage: 1.5 [G ]
     Route: 064
     Dates: start: 20130308, end: 20130308
  4. QUILONUM [Suspect]
     Active Substance: LITHIUM CARBONATE
     Indication: BIPOLAR DISORDER
     Dosage: 1350 [MG/D (BIS 1150) ]
     Route: 064
     Dates: start: 20120604, end: 20130309
  5. L-THYROXIN [Concomitant]
     Active Substance: LEVOTHYROXINE SODIUM
     Indication: HYPOTHYROIDISM
     Dosage: 100 [?G/D (BIS 75) ]/ HYPOTHYROIDISM AS ADVERSE EFFECT OF LITHIUM THERAPY
     Route: 064
     Dates: start: 20120604, end: 20130309
  6. CELESTAN [Concomitant]
     Active Substance: BETAMETHASONE
     Indication: MATERNAL THERAPY TO ENHANCE FOETAL LUNG MATURITY
     Dosage: 4 [MG/D ]
     Route: 064
     Dates: start: 20130116, end: 20130117
  7. PARTUSISTEN [Concomitant]
     Active Substance: FENOTEROL
     Indication: PREMATURE LABOUR
     Dosage: UNTIL?
     Route: 064
     Dates: start: 20130111, end: 20130111
  8. SERTRALINE [Suspect]
     Active Substance: SERTRALINE HYDROCHLORIDE
     Indication: BIPOLAR DISORDER
     Dosage: 100 [MG/D ]
     Route: 064
     Dates: start: 20120604, end: 20130309
  9. PROTAPHANE [Concomitant]
     Active Substance: INSULIN HUMAN
     Indication: GESTATIONAL DIABETES
     Route: 064
  10. FOLSYRE [Concomitant]
     Indication: PROPHYLAXIS OF NEURAL TUBE DEFECT
     Dosage: 5 [MG/D ]
     Route: 064
     Dates: start: 20120604, end: 20130309
  11. AMOXYPEN [Concomitant]
     Active Substance: AMOXICILLIN
     Indication: C-REACTIVE PROTEIN INCREASED
     Dosage: 1500 [MG/D (3X500) ]
     Route: 064
  12. LAMOTRIGINE. [Suspect]
     Active Substance: LAMOTRIGINE
     Indication: BIPOLAR DISORDER
     Dosage: 300 [MG/D ]
     Route: 064
     Dates: start: 20120604, end: 20130309
  13. METFORMIN [Concomitant]
     Active Substance: METFORMIN HYDROCHLORIDE
     Indication: POLYCYSTIC OVARIES
     Dosage: 1500 [MG/D ]
     Route: 064
     Dates: start: 20120604, end: 20120724

REACTIONS (5)
  - Pyloric stenosis [Recovered/Resolved]
  - Haemangioma congenital [Unknown]
  - Agitation neonatal [Recovered/Resolved]
  - Kidney duplex [Not Recovered/Not Resolved]
  - Vesicoureteric reflux [Not Recovered/Not Resolved]

NARRATIVE: CASE EVENT DATE: 20130309
